FAERS Safety Report 26115276 (Version 1)
Quarter: 2025Q4

REPORT INFORMATION
  Report Type: Spontaneous
  Country: US (occurrence: US)
  Receive Date: 20251203
  Receipt Date: 20251203
  Transmission Date: 20260117
  Serious: No
  Sender: AMGEN
  Company Number: US-AMGEN-USASP2025236257

PATIENT
  Sex: Female

DRUGS (20)
  1. PROLIA [Suspect]
     Active Substance: DENOSUMAB
     Indication: Product used for unknown indication
     Dosage: 60 MILLIGRAM, Q6MO
     Route: 058
     Dates: start: 20251002
  2. ALBUTEROL [Concomitant]
     Active Substance: ALBUTEROL
  3. ELIQUIS [Concomitant]
     Active Substance: APIXABAN
  4. VITAMIN C [Concomitant]
     Active Substance: ASCORBIC ACID
  5. VITAMIN D3 [Concomitant]
     Active Substance: CHOLECALCIFEROL
  6. DULOXETINE [Concomitant]
     Active Substance: DULOXETINE
  7. JARDIANCE [Concomitant]
     Active Substance: EMPAGLIFLOZIN
  8. ALLEGRA [Concomitant]
     Active Substance: FEXOFENADINE HYDROCHLORIDE
  9. FLONASE [Concomitant]
     Active Substance: FLUTICASONE PROPIONATE
  10. TRELEGY ELLIPTA [Concomitant]
     Active Substance: FLUTICASONE FUROATE\UMECLIDINIUM BROMIDE\VILANTEROL TRIFENATATE
  11. COZAAR [Concomitant]
     Active Substance: LOSARTAN POTASSIUM
  12. LUMIGAN [Concomitant]
     Active Substance: BIMATOPROST
  13. MAGNESIUM [Concomitant]
     Active Substance: MAGNESIUM
  14. SINGULAIR [Concomitant]
     Active Substance: MONTELUKAST SODIUM
  15. POTASSIUM [Concomitant]
     Active Substance: POTASSIUM
  16. ACIPHEX [Concomitant]
     Active Substance: RABEPRAZOLE SODIUM
  17. VALTREX [Concomitant]
     Active Substance: VALACYCLOVIR HYDROCHLORIDE
  18. ZINC ACETATE [Concomitant]
     Active Substance: ZINC ACETATE
  19. ASPIRIN [Concomitant]
     Active Substance: ASPIRIN
  20. INDERAL LA [Concomitant]
     Active Substance: PROPRANOLOL HYDROCHLORIDE

REACTIONS (2)
  - Asthma [Unknown]
  - Upper-airway cough syndrome [Unknown]
